FAERS Safety Report 7129112-9 (Version None)
Quarter: 2010Q4

REPORT INFORMATION
  Report Type: 
  Country: None (occurrence: None)
  Receive Date: 20101130
  Receipt Date: 20101129
  Transmission Date: 20110411
  Serious: Yes (Disabling)
  Sender: FDA-Public Use
  Company Number: EC-ROCHE-744819

PATIENT
  Sex: Female
  Weight: 64.4 kg

DRUGS (1)
  1. ISOTRETINOIN [Suspect]
     Indication: ACNE CONGLOBATA
     Dosage: FREQUENCY: QD
     Route: 048
     Dates: start: 20100507

REACTIONS (1)
  - BREAST DISCOMFORT [None]
